FAERS Safety Report 17693687 (Version 1)
Quarter: 2020Q2

REPORT INFORMATION
  Report Type: Spontaneous
  Country: JO (occurrence: JO)
  Receive Date: 20200422
  Receipt Date: 20200422
  Transmission Date: 20200714
  Serious: Yes (Other)
  Sender: FDA-Public Use
  Company Number: JO-PFIZER INC-2020158200

PATIENT
  Age: 9 Year
  Sex: Female

DRUGS (1)
  1. VINCRISTINE SULFATE. [Suspect]
     Active Substance: VINCRISTINE SULFATE
     Indication: ANGIOSARCOMA
     Dosage: 0.05 MG/KG, CYCLIC (FOR 6 CYCLES EVERY 3 WEEKS, AFTER THE SECOND CYCLE)
     Route: 042

REACTIONS (1)
  - Neuropathy peripheral [Recovered/Resolved]
